FAERS Safety Report 9249862 (Version 3)
Quarter: 2013Q3

REPORT INFORMATION
  Report Type: Report from Study
  Country: JP (occurrence: JP)
  Receive Date: 20130423
  Receipt Date: 20130813
  Transmission Date: 20140515
  Serious: Yes (Other)
  Sender: FDA-Public Use
  Company Number: JP-009507513-1304JPN010565

PATIENT
  Age: 78 Year
  Sex: Male

DRUGS (7)
  1. EMEND [Suspect]
     Indication: PROPHYLAXIS OF NAUSEA AND VOMITING
     Dosage: 125 MG, QD
     Route: 048
     Dates: start: 20120419, end: 20120419
  2. EMEND [Suspect]
     Dosage: 80 MG, QD
     Dates: start: 20130420, end: 20130421
  3. CISPLATIN [Concomitant]
     Dosage: UNK
     Dates: start: 20120419, end: 20120419
  4. DECADRON PHOSPHATE INJECTION [Concomitant]
     Dosage: UNK
     Dates: start: 20120419, end: 20120421
  5. GRANISETRON HYDROCHLORIDE [Concomitant]
     Dosage: UNK
     Dates: start: 20120419, end: 20120419
  6. DEXART [Concomitant]
     Dosage: UNK
     Dates: start: 20120419, end: 20120419
  7. SOLANAX [Concomitant]
     Dosage: UNK
     Dates: start: 20120419, end: 20120423

REACTIONS (2)
  - Renal failure acute [Not Recovered/Not Resolved]
  - Oedema peripheral [Recovered/Resolved]
